FAERS Safety Report 4333688-4 (Version None)
Quarter: 2004Q2

REPORT INFORMATION
  Report Type: 
  Country: None (occurrence: None)
  Receive Date: 20040402
  Receipt Date: 20040324
  Transmission Date: 20050107
  Serious: Yes (Death, Other)
  Sender: FDA-Public Use
  Company Number: 2004008919

PATIENT
  Sex: Female

DRUGS (1)
  1. VFEND [Suspect]
     Indication: FUNGAL INFECTION
     Dosage: ORAL
     Route: 048
     Dates: end: 20040101

REACTIONS (1)
  - ACUTE MYELOID LEUKAEMIA [None]
